FAERS Safety Report 17202317 (Version 1)
Quarter: 2019Q4

REPORT INFORMATION
  Report Type: Spontaneous
  Country: US (occurrence: US)
  Receive Date: 20191226
  Receipt Date: 20191226
  Transmission Date: 20200122
  Serious: No
  Sender: FDA-Public Use
  Company Number: US-PFIZER INC-2019551795

PATIENT
  Age: 64 Year
  Sex: Female
  Weight: 70.31 kg

DRUGS (1)
  1. CELEBREX [Suspect]
     Active Substance: CELECOXIB
     Indication: FIBROMYALGIA
     Dosage: 150 MG, 2X/DAY

REACTIONS (1)
  - Drug ineffective [Unknown]
